FAERS Safety Report 9328920 (Version 1)
Quarter: 2013Q2

REPORT INFORMATION
  Report Type: Spontaneous
  Country: BR (occurrence: BR)
  Receive Date: 20130604
  Receipt Date: 20130604
  Transmission Date: 20140414
  Serious: Yes (Hospitalization)
  Sender: FDA-Public Use
  Company Number: BR-BRISTOL-MYERS SQUIBB COMPANY-18953927

PATIENT
  Age: 65 Year
  Sex: Female
  Weight: 110 kg

DRUGS (11)
  1. ONGLYZA TABS 5 MG [Suspect]
     Indication: DIABETES MELLITUS
     Route: 048
     Dates: start: 201105
  2. ONGLYZA TABS 5 MG [Suspect]
     Indication: WEIGHT DECREASED
     Route: 048
     Dates: start: 201105
  3. GLIFAGE [Suspect]
     Indication: DIABETES MELLITUS
     Dates: start: 201105
  4. GLIMEPIRIDE [Concomitant]
     Indication: DIABETES MELLITUS
     Dates: start: 201105
  5. GALVUS [Concomitant]
     Indication: DIABETES MELLITUS
     Dates: start: 201105
  6. ATACAND HCT [Concomitant]
     Indication: CARDIAC DISORDER
     Dosage: 1DF:16/12.5 MG
     Dates: start: 201105
  7. PRESSAT [Concomitant]
     Indication: HYPERTENSION
     Dates: start: 201105
  8. CLOPIDOGREL BISULFATE [Concomitant]
     Indication: ANTICOAGULANT THERAPY
     Dates: start: 201105
  9. SELOZOK [Concomitant]
     Indication: CARDIAC DISORDER
     Dates: start: 201105
  10. LASIX [Concomitant]
     Indication: FLUID RETENTION
     Dates: start: 201105
  11. SIMVASTATIN [Concomitant]
     Indication: BLOOD CHOLESTEROL INCREASED
     Dates: start: 201105

REACTIONS (3)
  - Abdominal pain [Unknown]
  - Diarrhoea [Unknown]
  - Venous occlusion [Unknown]
